FAERS Safety Report 15553741 (Version 2)
Quarter: 2019Q3

REPORT INFORMATION
  Report Type: Spontaneous
  Country: US (occurrence: US)
  Receive Date: 20181026
  Receipt Date: 20190912
  Transmission Date: 20191004
  Serious: Yes (Other)
  Sender: FDA-Public Use
  Company Number: US-SA-2017SA265660

PATIENT
  Age: 59 Year
  Sex: Female
  Weight: 69.39 kg

DRUGS (14)
  1. OXYCODONE [Concomitant]
     Active Substance: OXYCODONE
     Route: 065
  2. POTASSIUM CHLORIDE. [Concomitant]
     Active Substance: POTASSIUM CHLORIDE
     Route: 065
  3. CARBOPLATIN. [Concomitant]
     Active Substance: CARBOPLATIN
     Indication: BREAST CANCER
  4. NEUPOGEN [Concomitant]
     Active Substance: FILGRASTIM
     Route: 065
  5. TRAZODONA [TRAZODONE HYDROCHLORIDE] [Concomitant]
     Route: 065
  6. SULFAZINE [Concomitant]
     Active Substance: SULFASALAZINE
     Route: 065
  7. TAXOTERE [Suspect]
     Active Substance: DOCETAXEL
     Indication: BREAST CANCER FEMALE
     Dosage: UNK UNK,QCY
     Route: 042
     Dates: start: 20121109, end: 20121109
  8. TAXOTERE [Suspect]
     Active Substance: DOCETAXEL
     Dosage: 135.8 MG, QCY
     Route: 042
     Dates: start: 2013, end: 2013
  9. LISINOPRIL. [Concomitant]
     Active Substance: LISINOPRIL
     Route: 065
  10. NEOSAR [Concomitant]
     Active Substance: CYCLOPHOSPHAMIDE
     Indication: BREAST CANCER
     Route: 065
  11. OXAZEPAM. [Concomitant]
     Active Substance: OXAZEPAM
     Route: 065
  12. CEPHALEXINE [Concomitant]
     Active Substance: CEPHALEXIN
     Route: 065
  13. HYDROCHLOROTHIAZID [Concomitant]
     Active Substance: HYDROCHLOROTHIAZIDE
     Route: 065
  14. NABUMETONE. [Concomitant]
     Active Substance: NABUMETONE
     Route: 065

REACTIONS (1)
  - Alopecia [Recovering/Resolving]
